FAERS Safety Report 5533975-8 (Version None)
Quarter: 2007Q4

REPORT INFORMATION
  Report Type: 
  Country: None (occurrence: None)
  Receive Date: 20071130
  Receipt Date: 20071116
  Transmission Date: 20080405
  Serious: Yes (Other)
  Sender: FDA-Public Use
  Company Number: US-1164377

PATIENT
  Sex: Male

DRUGS (1)
  1. SYSTANE EYE DROPS [Suspect]
     Indication: DRY EYE
     Dosage: (OPHTHALMIC)
     Route: 047
     Dates: start: 20071001, end: 20071001

REACTIONS (4)
  - BURNING SENSATION [None]
  - EXPIRED DRUG ADMINISTERED [None]
  - EYE IRRITATION [None]
  - VISUAL ACUITY REDUCED [None]
